FAERS Safety Report 10304444 (Version 2)
Quarter: 2014Q3

REPORT INFORMATION
  Report Type: Spontaneous
  Country: US (occurrence: US)
  Receive Date: 20140715
  Receipt Date: 20140729
  Transmission Date: 20150326
  Serious: Yes (Hospitalization)
  Sender: FDA-Public Use
  Company Number: US-ROCHE-1432507

PATIENT
  Sex: Female

DRUGS (6)
  1. CLONAZEPAM. [Suspect]
     Active Substance: CLONAZEPAM
     Indication: COMPLEX REGIONAL PAIN SYNDROME
  2. KLONOPIN [Suspect]
     Active Substance: CLONAZEPAM
     Indication: COMPLEX REGIONAL PAIN SYNDROME
     Dosage: 1MG IN AM AND 2MG AT BED TIME
     Route: 048
  3. CLONAZEPAM. [Suspect]
     Active Substance: CLONAZEPAM
     Indication: COMPLEX REGIONAL PAIN SYNDROME
     Route: 065
  4. BENADRYL [Suspect]
     Active Substance: DIPHENHYDRAMINE HYDROCHLORIDE
     Indication: PRODUCT USED FOR UNKNOWN INDICATION
     Route: 065
  5. KLONOPIN [Suspect]
     Active Substance: CLONAZEPAM
     Indication: COMPLEX REGIONAL PAIN SYNDROME
  6. BACLOFEN. [Concomitant]
     Active Substance: BACLOFEN

REACTIONS (9)
  - Hyperhidrosis [Unknown]
  - Throat irritation [Unknown]
  - Arteriospasm coronary [Unknown]
  - Restless legs syndrome [Unknown]
  - Urticaria [Unknown]
  - Hepatic enzyme increased [Unknown]
  - Myoclonic epilepsy [Unknown]
  - Oral pruritus [Unknown]
  - Biliary colic [Unknown]
